FAERS Safety Report 7449676-5 (Version None)
Quarter: 2011Q1

REPORT INFORMATION
  Report Type: 
  Country: None (occurrence: None)
  Receive Date: 20110302
  Receipt Date: 20101203
  Transmission Date: 20110831
  Serious: No
  Sender: FDA-Public Use
  Company Number: 023169

PATIENT
  Sex: Female
  Weight: 48.5 kg

DRUGS (5)
  1. TRAMADOL HCL [Concomitant]
  2. PHENERGAN HCL [Concomitant]
  3. AMITRIPTYLINE HCL [Concomitant]
  4. CIMZIA [Suspect]
     Indication: CROHN'S DISEASE
     Dosage: 400 MG 1X/MONTH, SITE OF INJECTION - THIGH SUBCUTANEOUS
     Route: 058
     Dates: start: 20100816
  5. WELLBUTRIN [Concomitant]

REACTIONS (4)
  - ABDOMINAL PAIN [None]
  - DIARRHOEA [None]
  - DRUG INEFFECTIVE [None]
  - CONSTIPATION [None]
